FAERS Safety Report 4558349-8 (Version None)
Quarter: 2005Q1

REPORT INFORMATION
  Report Type: 
  Country: None (occurrence: None)
  Receive Date: 20050103
  Receipt Date: 20041006
  Transmission Date: 20050727
  Serious: Yes (Other)
  Sender: FDA-Public Use
  Company Number: 2004UW21038

PATIENT
  Age: 57 Year
  Sex: Male
  Weight: 72.574 kg

DRUGS (5)
  1. CRESTOR [Suspect]
     Indication: LOW DENSITY LIPOPROTEIN DECREASED
     Dosage: 10 MG PO
     Route: 048
     Dates: start: 20040901
  2. STATINS [Concomitant]
  3. COREG [Concomitant]
  4. PRINIVIL [Concomitant]
  5. PREVACID [Concomitant]

REACTIONS (1)
  - CHROMATURIA [None]
